FAERS Safety Report 9813408 (Version 4)
Quarter: 2014Q2

REPORT INFORMATION
  Report Type: Spontaneous
  Country: US (occurrence: None)
  Receive Date: 20140109
  Receipt Date: 20140515
  Transmission Date: 20141212
  Serious: Yes (Hospitalization, Other)
  Sender: FDA-Public Use
  Company Number: ADR-2014-00005

PATIENT
  Sex: Male

DRUGS (3)
  1. BACLOFEN [Suspect]
     Indication: SURGERY
     Dosage: 250.03 MCG/DAY
     Dates: start: 20060606
  2. DILAUDID [Suspect]
     Dosage: 0.10001 MG/DAY
  3. CLONIDINE [Suspect]

REACTIONS (6)
  - Drug withdrawal syndrome [None]
  - Device kink [None]
  - Device occlusion [None]
  - Device dislocation [None]
  - Infection [None]
  - Pump reservoir issue [None]
